FAERS Safety Report 8052980-3 (Version None)
Quarter: 2012Q1

REPORT INFORMATION
  Report Type: 
  Country: None (occurrence: None)
  Receive Date: 20120118
  Receipt Date: 20120112
  Transmission Date: 20120608
  Serious: Yes (Hospitalization)
  Sender: FDA-Public Use
  Company Number: IL-SANOFI-AVENTIS-2011SA083763

PATIENT
  Age: 56 Year
  Sex: Male
  Weight: 95.8 kg

DRUGS (9)
  1. DOCETAXEL [Suspect]
     Route: 042
     Dates: start: 20110725, end: 20110725
  2. SODIUM CHLORIDE [Concomitant]
     Dates: start: 20111114, end: 20111114
  3. ACETAMINOPHEN [Concomitant]
     Dates: start: 20111117, end: 20111117
  4. DEXAMETHASONE TAB [Concomitant]
     Dates: start: 20111114, end: 20111119
  5. DIPYRON [Concomitant]
  6. BLINDED THERAPY [Suspect]
     Route: 042
     Dates: start: 20110725, end: 20110725
  7. DOCETAXEL [Suspect]
     Route: 042
     Dates: start: 20111024, end: 20111024
  8. BLINDED THERAPY [Suspect]
     Route: 042
     Dates: start: 20111024, end: 20111024
  9. ENALAPRIL MALEATE [Concomitant]
     Dates: start: 20020101

REACTIONS (2)
  - ABSCESS [None]
  - PYREXIA [None]
